FAERS Safety Report 19134808 (Version 4)
Quarter: 2021Q2

REPORT INFORMATION
  Report Type: Spontaneous
  Country: US (occurrence: US)
  Receive Date: 20210414
  Receipt Date: 20210526
  Transmission Date: 20210717
  Serious: Yes (Other)
  Sender: FDA-Public Use
  Company Number: US-ROCHE-2800300

PATIENT
  Sex: Female

DRUGS (3)
  1. GAVRETO [Suspect]
     Active Substance: PRALSETINIB
     Route: 048
     Dates: start: 20210319
  2. GAVRETO [Suspect]
     Active Substance: PRALSETINIB
     Indication: NEOPLASM MALIGNANT
     Route: 048
  3. VITAMIN D [ERGOCALCIFEROL] [Concomitant]
     Active Substance: ERGOCALCIFEROL
     Indication: PRODUCT USED FOR UNKNOWN INDICATION
     Route: 065

REACTIONS (9)
  - Platelet count decreased [Unknown]
  - Transfusion [Unknown]
  - Taste disorder [Unknown]
  - Neuropathy peripheral [Unknown]
  - Haemoglobin decreased [Unknown]
  - Stomatitis [Recovered/Resolved]
  - Chest discomfort [Unknown]
  - Blood count abnormal [Unknown]
  - Pyrexia [Unknown]
